FAERS Safety Report 21122539 (Version 5)
Quarter: 2022Q4

REPORT INFORMATION
  Report Type: Spontaneous
  Country: US (occurrence: US)
  Receive Date: 20220723
  Receipt Date: 20221101
  Transmission Date: 20230113
  Serious: No
  Sender: FDA-Public Use
  Company Number: US-BRISTOL-MYERS SQUIBB COMPANY-2022-078135

PATIENT
  Age: 78 Year
  Sex: Female
  Weight: 52.48 kg

DRUGS (3)
  1. POMALYST [Suspect]
     Active Substance: POMALIDOMIDE
     Indication: Plasma cell myeloma
     Dosage: FREQ : D 1-21 Q 28 DAYS
     Route: 048
     Dates: start: 20220627
  2. POMALYST [Suspect]
     Active Substance: POMALIDOMIDE
     Dosage: FREQ : D 1-21 Q 28 DAYS.
     Route: 048
     Dates: start: 20220627
  3. POMALYST [Suspect]
     Active Substance: POMALIDOMIDE
     Route: 048
     Dates: start: 20220830

REACTIONS (7)
  - White blood cell count decreased [Not Recovered/Not Resolved]
  - Diarrhoea [Unknown]
  - Abdominal pain [Unknown]
  - Product dose omission issue [Unknown]
  - Adverse event [Recovered/Resolved]
  - Laboratory test abnormal [Unknown]
  - Raynaud^s phenomenon [Unknown]
